FAERS Safety Report 6761372-6 (Version None)
Quarter: 2010Q2

REPORT INFORMATION
  Report Type: 
  Country: None (occurrence: None)
  Receive Date: 20100607
  Receipt Date: 20100525
  Transmission Date: 20101027
  Serious: Yes (Other)
  Sender: FDA-Public Use
  Company Number: DE-1182055

PATIENT
  Sex: Female

DRUGS (1)
  1. MAXITROL [Suspect]
     Indication: PROPHYLAXIS
     Dosage: OPHTHALMIC
     Route: 047

REACTIONS (5)
  - DRY EYE [None]
  - EYE IRRITATION [None]
  - EYE PRURITUS [None]
  - POSTERIOR CAPSULE OPACIFICATION [None]
  - SKIN TURGOR DECREASED [None]
